FAERS Safety Report 17446332 (Version 3)
Quarter: 2020Q1

REPORT INFORMATION
  Report Type: Spontaneous
  Country: CA (occurrence: CA)
  Receive Date: 20200221
  Receipt Date: 20200227
  Transmission Date: 20200409
  Serious: Yes (Congenital Anomaly, Other)
  Sender: FDA-Public Use
  Company Number: CA-PFIZER INC-2004047160

PATIENT
  Sex: Male
  Weight: 3.45 kg

DRUGS (8)
  1. FLUCONAZOLE. [Suspect]
     Active Substance: FLUCONAZOLE
     Indication: VULVOVAGINAL CANDIDIASIS
     Dosage: 800 MG, DAILY
     Route: 064
  2. EFAVIRENZ. [Concomitant]
     Active Substance: EFAVIRENZ
     Dosage: 600 MG, DAILY
     Route: 064
  3. SUSTIVA [Concomitant]
     Active Substance: EFAVIRENZ
     Dosage: UNK
  4. NEVIRAPINE. [Concomitant]
     Active Substance: NEVIRAPINE
     Dosage: 400 MG, DAILY
     Route: 064
  5. METHADONE [Concomitant]
     Active Substance: METHADONE HYDROCHLORIDE
     Dosage: 90 MG, DAILY
     Route: 064
  6. PENTAMIDINE [Concomitant]
     Active Substance: PENTAMIDINE
     Dosage: UNK
     Route: 064
  7. DAPSONE. [Concomitant]
     Active Substance: DAPSONE
     Dosage: UNK
  8. SEPTRA [Concomitant]
     Active Substance: SULFAMETHOXAZOLE\TRIMETHOPRIM
     Dosage: UNK
     Route: 064

REACTIONS (19)
  - Congenital musculoskeletal anomaly [Not Recovered/Not Resolved]
  - Deafness bilateral [Not Recovered/Not Resolved]
  - Neonatal seizure [Unknown]
  - Syndactyly [Not Recovered/Not Resolved]
  - Synostosis [Not Recovered/Not Resolved]
  - Eyelid ptosis congenital [Not Recovered/Not Resolved]
  - Skull malformation [Unknown]
  - Hypertelorism of orbit [Not Recovered/Not Resolved]
  - Hydronephrosis [Not Recovered/Not Resolved]
  - Radioulnar synostosis [Not Recovered/Not Resolved]
  - Deformity of orbit [Not Recovered/Not Resolved]
  - Congenital eyelid malformation [Not Recovered/Not Resolved]
  - Congenital nose malformation [Not Recovered/Not Resolved]
  - Brachycephaly [Not Recovered/Not Resolved]
  - Drug withdrawal syndrome neonatal [Unknown]
  - Conductive deafness [Not Recovered/Not Resolved]
  - Foetal exposure during pregnancy [Not Recovered/Not Resolved]
  - Dysmorphism [Not Recovered/Not Resolved]
  - Craniosynostosis [Not Recovered/Not Resolved]
